FAERS Safety Report 8524457-X (Version None)
Quarter: 2012Q3

REPORT INFORMATION
  Report Type: 
  Country: None (occurrence: None)
  Receive Date: 20120716
  Receipt Date: 20120716
  Transmission Date: 20120928
  Serious: Yes (Hospitalization)
  Sender: FDA-Public Use
  Company Number: None

PATIENT
  Sex: Female
  Weight: 66.1 kg

DRUGS (3)
  1. BEVACIZUMAB (RHUMAB VEGF) 3934 MG [Suspect]
     Dosage: 3934 MG
  2. PACLITAXEL [Suspect]
     Dosage: 1296 MG
  3. CARBOPLATIN [Suspect]
     Dosage: 2965 MG

REACTIONS (3)
  - DIARRHOEA [None]
  - CARDIAC ARREST [None]
  - UNRESPONSIVE TO STIMULI [None]
